FAERS Safety Report 18179660 (Version 1)
Quarter: 2020Q3

REPORT INFORMATION
  Report Type: Spontaneous
  Country: TH (occurrence: TH)
  Receive Date: 20200820
  Receipt Date: 20200820
  Transmission Date: 20201103
  Serious: Yes (Death, Hospitalization)
  Sender: FDA-Public Use
  Company Number: TH-BAXTER-2020BAX016639

PATIENT
  Age: 60 Year
  Sex: Female

DRUGS (1)
  1. DIANEAL LOW CALCIUM PERITONEAL DIALYSIS SOLUTION WITH DEXTROSE [Suspect]
     Active Substance: CALCIUM CHLORIDE\DEXTROSE\MAGNESIUM CHLORIDE\SODIUM CHLORIDE\SODIUM LACTATE
     Indication: PERITONEAL DIALYSIS
     Dosage: 5 CYCLES IN 10 HOURS/NIGHT
     Route: 033
     Dates: start: 20200319, end: 20200724

REACTIONS (3)
  - Respiratory failure [Fatal]
  - Lung disorder [Fatal]
  - Haemoptysis [Unknown]

NARRATIVE: CASE EVENT DATE: 20200724
